FAERS Safety Report 22389600 (Version 1)
Quarter: 2023Q2

REPORT INFORMATION
  Report Type: Spontaneous
  Country: US (occurrence: US)
  Receive Date: 20230531
  Receipt Date: 20230531
  Transmission Date: 20230721
  Serious: Yes (Other)
  Sender: FDA-Public Use
  Company Number: US-PFIZER INC-2016301283

PATIENT
  Age: 19 Year
  Sex: Male
  Weight: 50.8 kg

DRUGS (1)
  1. BENEFIX [Suspect]
     Active Substance: COAGULATION FACTOR IX RECOMBINANT HUMAN\ISOPROPYL ALCOHOL
     Indication: Factor IX deficiency
     Dosage: 100 IU/KG, DAILY (100 UNITS/KG DAILY ON DEMAND FOR BLEEDS)

REACTIONS (1)
  - Haemorrhage [Unknown]
